FAERS Safety Report 12591491 (Version 1)
Quarter: 2016Q3

REPORT INFORMATION
  Report Type: Spontaneous
  Country: US (occurrence: None)
  Receive Date: 20160725
  Receipt Date: 20160725
  Transmission Date: 20161109
  Serious: No
  Sender: FDA-Public Use
  Company Number: None

PATIENT
  Age: 69 Year
  Sex: Male
  Weight: 97.52 kg

DRUGS (22)
  1. CYCLOBENZAPRINE [Suspect]
     Active Substance: CYCLOBENZAPRINE
     Indication: MUSCLE SPASMS
     Route: 048
     Dates: start: 20160625
  2. 5-HTP [Concomitant]
     Active Substance: OXITRIPTAN
  3. VITAMIN B12 [Concomitant]
     Active Substance: CYANOCOBALAMIN
  4. MOBIC [Concomitant]
     Active Substance: MELOXICAM
  5. PATANASE [Concomitant]
     Active Substance: OLOPATADINE HYDROCHLORIDE
  6. CINSULIN [Concomitant]
  7. FISH OIL [Concomitant]
     Active Substance: FISH OIL
  8. CHOLESTOFF [Concomitant]
  9. LYRICA [Concomitant]
     Active Substance: PREGABALIN
  10. AZELASTINE HCL [Concomitant]
     Active Substance: AZELASTINE HYDROCHLORIDE
  11. ALLERTEX [Concomitant]
  12. UROCRIT [Concomitant]
  13. JANUMET [Concomitant]
     Active Substance: METFORMIN HYDROCHLORIDE\SITAGLIPTIN PHOSPHATE
  14. VIAGRA [Concomitant]
     Active Substance: SILDENAFIL CITRATE
  15. NUCYNTA [Concomitant]
     Active Substance: TAPENTADOL HYDROCHLORIDE
  16. GINKO BILOBA [Concomitant]
     Active Substance: GINKGO
  17. MEGA RED JOINT [Concomitant]
  18. SUPER B [Concomitant]
  19. CRANBERRY EXTRACT [Concomitant]
     Active Substance: CRANBERRY JUICE
  20. PROSTATE HEALTH COMPLEX [Concomitant]
  21. MAGNESIUM [Concomitant]
     Active Substance: MAGNESIUM
  22. SCHIFF PROSTATE HEALTH [Concomitant]

REACTIONS (2)
  - Hangover [None]
  - Somnolence [None]

NARRATIVE: CASE EVENT DATE: 20160625
